FAERS Safety Report 20797135 (Version 1)
Quarter: 2022Q2

REPORT INFORMATION
  Report Type: Spontaneous
  Country: US (occurrence: US)
  Receive Date: 20220506
  Receipt Date: 20220506
  Transmission Date: 20220721
  Serious: No
  Sender: FDA-Public Use
  Company Number: US-BRISTOL-MYERS SQUIBB COMPANY-2022-025847

PATIENT
  Age: 67 Year
  Sex: Male

DRUGS (1)
  1. POMALYST [Suspect]
     Active Substance: POMALIDOMIDE
     Indication: Plasma cell myeloma
     Dosage: 4 MILLIGRAM, FREQ: 1 CAPSULE DAILY FOR 21 DAYS, THEN OFF FOR 7 DAYS TO COMPLETE 28 DAY CYCLE
     Route: 048
     Dates: start: 20220331

REACTIONS (1)
  - Rash pruritic [Unknown]
